FAERS Safety Report 19367106 (Version 5)
Quarter: 2021Q3

REPORT INFORMATION
  Report Type: Report from Study
  Country: CA (occurrence: CA)
  Receive Date: 20210603
  Receipt Date: 20210726
  Transmission Date: 20211014
  Serious: Yes (Hospitalization)
  Sender: FDA-Public Use
  Company Number: CA-BIOGEN-2021BI01016627

PATIENT
  Age: 69 Year
  Sex: Female

DRUGS (2)
  1. FAMPYRA [Suspect]
     Active Substance: DALFAMPRIDINE
     Indication: MULTIPLE SCLEROSIS
     Route: 048
     Dates: start: 20191019
  2. FAMPYRA [Suspect]
     Active Substance: DALFAMPRIDINE
     Route: 048
     Dates: start: 20210628

REACTIONS (8)
  - Urinary tract infection [Unknown]
  - Blood magnesium abnormal [Unknown]
  - Fall [Recovered/Resolved]
  - Blood potassium abnormal [Unknown]
  - Urinary tract infection [Recovered/Resolved]
  - Feeding disorder [Unknown]
  - Asthenia [Unknown]
  - Nephrolithiasis [Recovered/Resolved]

NARRATIVE: CASE EVENT DATE: 202105
